FAERS Safety Report 5417623-3 (Version None)
Quarter: 2007Q3

REPORT INFORMATION
  Report Type: 
  Country: None (occurrence: None)
  Receive Date: 20070718
  Receipt Date: 20060630
  Transmission Date: 20080115
  Serious: Yes (Other)
  Sender: FDA-Public Use
  Company Number: 2005125613

PATIENT
  Age: 65 Year
  Sex: Male
  Weight: 113.3993 kg

DRUGS (3)
  1. CELEBREX [Suspect]
     Indication: ARTHRITIS
     Dosage: (200 MG, AS NECESSARY)
     Dates: start: 20011201
  2. VIOXX [Suspect]
     Indication: ARTHRITIS
     Dosage: 25 MG (25 MG, 1 IN 1 D)
  3. ALLOPURINOL [Concomitant]

REACTIONS (1)
  - STEVENS-JOHNSON SYNDROME [None]
